FAERS Safety Report 24218364 (Version 1)
Quarter: 2024Q3

REPORT INFORMATION
  Report Type: Spontaneous
  Country: US (occurrence: None)
  Receive Date: 20240815
  Receipt Date: 20240815
  Transmission Date: 20241017
  Serious: Yes (Disabling)
  Sender: Public
  Company Number: None

PATIENT
  Age: 69 Year
  Sex: Female
  Weight: 115.2 kg

DRUGS (10)
  1. OZEMPIC [Suspect]
     Active Substance: SEMAGLUTIDE
     Indication: Diabetes mellitus
     Dosage: FREQUENCY : WEEKLY;?
     Route: 058
  2. ARMOUR THYROID [Concomitant]
     Active Substance: THYROID, PORCINE
  3. CLONIDINE [Concomitant]
     Active Substance: CLONIDINE
  4. ZANAFLEX [Concomitant]
     Active Substance: TIZANIDINE HYDROCHLORIDE
  5. UNSPECIFIED INGREDIENT [Concomitant]
     Active Substance: UNSPECIFIED INGREDIENT
  6. Liguid Attarax [Concomitant]
  7. xopenx inhaler [Concomitant]
  8. TRESIBA [Concomitant]
     Active Substance: INSULIN DEGLUDEC
  9. DEVICE [Concomitant]
     Active Substance: DEVICE
  10. TRAMADOL [Concomitant]
     Active Substance: TRAMADOL\TRAMADOL HYDROCHLORIDE

REACTIONS (33)
  - Feeling abnormal [None]
  - Bedridden [None]
  - Dyspepsia [None]
  - Breath odour [None]
  - Abdominal pain upper [None]
  - Blood glucose decreased [None]
  - Asthenia [None]
  - Dyspnoea exertional [None]
  - Restlessness [None]
  - Connective tissue disorder [None]
  - Tissue injury [None]
  - Muscle rigidity [None]
  - Mobility decreased [None]
  - Joint injury [None]
  - Joint dislocation [None]
  - Pain [None]
  - Muscle tightness [None]
  - Gait disturbance [None]
  - Tendon injury [None]
  - Muscle rupture [None]
  - Palpitations [None]
  - Muscle spasms [None]
  - Muscle spasms [None]
  - Paralysis [None]
  - Muscular weakness [None]
  - Memory impairment [None]
  - Tendonitis [None]
  - Blood glucose increased [None]
  - Blood pressure increased [None]
  - Muscle spasms [None]
  - Peripheral swelling [None]
  - Synovial cyst [None]
  - Tendon rupture [None]

NARRATIVE: CASE EVENT DATE: 20230115
